FAERS Safety Report 11497527 (Version 1)
Quarter: 2015Q3

REPORT INFORMATION
  Report Type: Spontaneous
  Country: US (occurrence: US)
  Receive Date: 20150911
  Receipt Date: 20150911
  Transmission Date: 20151125
  Serious: No
  Sender: FDA-Public Use
  Company Number: US-ASTRAZENECA-2015SE84692

PATIENT
  Sex: Female
  Weight: 78.9 kg

DRUGS (5)
  1. BUPROPION XL [Concomitant]
     Active Substance: BUPROPION
     Indication: DEPRESSION
     Route: 048
  2. PRILOSEC [Concomitant]
     Active Substance: OMEPRAZOLE MAGNESIUM
     Indication: ABDOMINAL DISCOMFORT
     Route: 048
  3. BYDUREON [Suspect]
     Active Substance: EXENATIDE
     Indication: TYPE 2 DIABETES MELLITUS
     Route: 058
     Dates: start: 201307
  4. CYMBALTA [Concomitant]
     Active Substance: DULOXETINE HYDROCHLORIDE
     Route: 048
  5. BUPROPION XL [Concomitant]
     Active Substance: BUPROPION
     Indication: ANXIETY
     Route: 048

REACTIONS (4)
  - Intentional product misuse [Unknown]
  - Multiple allergies [Unknown]
  - Injection site extravasation [Unknown]
  - Injection site haemorrhage [Unknown]
